FAERS Safety Report 7601464-2 (Version None)
Quarter: 2011Q3

REPORT INFORMATION
  Report Type: 
  Country: None (occurrence: None)
  Receive Date: 20110711
  Receipt Date: 20110704
  Transmission Date: 20111222
  Serious: Yes (Other)
  Sender: FDA-Public Use
  Company Number: SE-PFIZER INC-2011149340

PATIENT
  Age: 70 Year
  Sex: Male

DRUGS (3)
  1. BICALUTAMIDE [Concomitant]
     Dosage: 150 MG, UNK
  2. PROVERA [Suspect]
     Indication: OFF LABEL USE
     Dosage: UNK
     Dates: start: 20110620, end: 20110630
  3. PROVERA [Suspect]
     Indication: HOT FLUSH

REACTIONS (4)
  - HAEMATOCHEZIA [None]
  - FATIGUE [None]
  - DRUG INEFFECTIVE FOR UNAPPROVED INDICATION [None]
  - PAIN [None]
